FAERS Safety Report 8793819 (Version 2)
Quarter: 2015Q1

REPORT INFORMATION
  Report Type: Report from Study
  Country: US (occurrence: US)
  Receive Date: 20120917
  Receipt Date: 20150316
  Transmission Date: 20150721
  Serious: Yes (Death, Hospitalization)
  Sender: FDA-Public Use
  Company Number: US-ROCHE-1123773

PATIENT
  Sex: Male
  Weight: 74.96 kg

DRUGS (12)
  1. AVASTIN [Suspect]
     Active Substance: BEVACIZUMAB
     Indication: PANCREATIC CARCINOMA
     Route: 042
     Dates: start: 20080207
  2. LEVAQUIN [Concomitant]
     Active Substance: LEVOFLOXACIN
     Route: 065
  3. ALOXI [Concomitant]
     Active Substance: PALONOSETRON HYDROCHLORIDE
     Dosage: WITH 1L OF NS
     Route: 065
  4. VICODIN [Concomitant]
     Active Substance: ACETAMINOPHEN\HYDROCODONE BITARTRATE
     Indication: PAIN
  5. OXYCODONE HYDROCHLORIDE IR [Concomitant]
     Active Substance: OXYCODONE HYDROCHLORIDE
     Route: 065
  6. MEGACE [Concomitant]
     Active Substance: MEGESTROL ACETATE
     Dosage: 40MG/ML, 5CC
     Route: 065
  7. GEMZAR [Concomitant]
     Active Substance: GEMCITABINE HYDROCHLORIDE
     Route: 065
  8. FENTANYL TRANSDERMAL [Concomitant]
     Active Substance: FENTANYL
     Indication: PAIN
     Route: 065
  9. MS CONTIN [Concomitant]
     Active Substance: MORPHINE SULFATE
     Dosage: AT 8 P.M.
     Route: 065
  10. TARCEVA [Suspect]
     Active Substance: ERLOTINIB HYDROCHLORIDE
     Indication: PRODUCT USED FOR UNKNOWN INDICATION
     Route: 048
     Dates: start: 200803
  11. ROXANOL [Concomitant]
     Active Substance: MORPHINE SULFATE
  12. SENOKOT [Concomitant]
     Active Substance: SENNOSIDES
     Route: 065

REACTIONS (11)
  - Pyrexia [Recovered/Resolved]
  - Asthenia [Recovering/Resolving]
  - Vomiting [Unknown]
  - Death [Fatal]
  - Inspiratory capacity decreased [Unknown]
  - Oedema [Recovered/Resolved]
  - Abdominal pain [Unknown]
  - Tumour necrosis [Unknown]
  - Malaise [Unknown]
  - Diarrhoea [Recovered/Resolved]
  - Nausea [Unknown]
